FAERS Safety Report 4656235-6 (Version None)
Quarter: 2005Q2

REPORT INFORMATION
  Report Type: 
  Country: None (occurrence: None)
  Receive Date: 20050509
  Receipt Date: 20050308
  Transmission Date: 20051028
  Serious: No
  Sender: FDA-Public Use
  Company Number: US-GLAXOSMITHKLINE-A0548820A

PATIENT
  Sex: Female

DRUGS (5)
  1. AVANDAMET [Suspect]
     Route: 048
     Dates: start: 20050127
  2. ANAPRIL [Concomitant]
  3. LORATADINE [Concomitant]
  4. PRAVACHOL [Concomitant]
  5. CYCLOBENZAPRIN [Concomitant]

REACTIONS (4)
  - ABASIA [None]
  - BACK PAIN [None]
  - MUSCULAR WEAKNESS [None]
  - PAIN IN EXTREMITY [None]
